FAERS Safety Report 8216020-5 (Version None)
Quarter: 2012Q1

REPORT INFORMATION
  Report Type: 
  Country: None (occurrence: None)
  Receive Date: 20120316
  Receipt Date: 20120313
  Transmission Date: 20120608
  Serious: Yes (Other)
  Sender: FDA-Public Use
  Company Number: US-PFIZER INC-2012034940

PATIENT
  Sex: Female

DRUGS (3)
  1. DETROL LA [Suspect]
     Dosage: UNK
  2. HYDROCHLOROTHIAZIDE [Concomitant]
     Dosage: UNK
  3. NORVASC [Suspect]
     Dosage: UNK

REACTIONS (2)
  - CELLULITIS [None]
  - RASH MACULAR [None]
